FAERS Safety Report 20304523 (Version 1)
Quarter: 2022Q1

REPORT INFORMATION
  Report Type: Spontaneous
  Country: US (occurrence: None)
  Receive Date: 20220105
  Receipt Date: 20220105
  Transmission Date: 20220423
  Serious: Yes (Other)
  Sender: FDA-Public Use
  Company Number: None

PATIENT
  Age: 49 Year
  Sex: Female
  Weight: 76.5 kg

DRUGS (5)
  1. REGEN-COV [Suspect]
     Active Substance: CASIRIVIMAB\IMDEVIMAB
     Indication: COVID-19
     Dosage: OTHER QUANTITY : 4 INJECTION(S);?FREQUENCY : ONCE;?
     Route: 058
     Dates: start: 20220103
  2. JANUVIA [Concomitant]
     Active Substance: SITAGLIPTIN PHOSPHATE
  3. METFORMIN [Concomitant]
     Active Substance: METFORMIN HYDROCHLORIDE
  4. ROSUVASTATIN [Concomitant]
     Active Substance: ROSUVASTATIN
  5. TopCare Severe Cold PE [Concomitant]

REACTIONS (7)
  - Injection site pruritus [None]
  - Injection site swelling [None]
  - Urticaria [None]
  - Urticaria [None]
  - Rash [None]
  - Injection site rash [None]
  - Hypersensitivity [None]

NARRATIVE: CASE EVENT DATE: 20220104
